FAERS Safety Report 6107033-8 (Version None)
Quarter: 2009Q1

REPORT INFORMATION
  Report Type: 
  Country: None (occurrence: None)
  Receive Date: 20090309
  Receipt Date: 20090302
  Transmission Date: 20090719
  Serious: Yes (Other)
  Sender: FDA-Public Use
  Company Number: IE-BAYER-200910483BNE

PATIENT
  Age: 61 Year
  Sex: Female

DRUGS (3)
  1. ANGELIQ [Suspect]
     Indication: HORMONE REPLACEMENT THERAPY
     Route: 048
     Dates: start: 20080108, end: 20081016
  2. NEO-MERCAZOLE TAB [Concomitant]
     Indication: DRUG USE FOR UNKNOWN INDICATION
  3. ZOLPIDEM TARTRATE [Concomitant]
     Indication: DRUG USE FOR UNKNOWN INDICATION

REACTIONS (1)
  - ALOPECIA [None]
